FAERS Safety Report 19601427 (Version 2)
Quarter: 2021Q3

REPORT INFORMATION
  Report Type: Spontaneous
  Country: GB (occurrence: GB)
  Receive Date: 20210722
  Receipt Date: 20210924
  Transmission Date: 20211014
  Serious: Yes (Other)
  Sender: FDA-Public Use
  Company Number: GB-REGENERON PHARMACEUTICALS, INC.-2021-70671

PATIENT

DRUGS (2)
  1. AFLIBERCEPT IAI [Suspect]
     Active Substance: AFLIBERCEPT
     Indication: NEOVASCULAR AGE-RELATED MACULAR DEGENERATION
     Dosage: 25 INJECTIONS IN RIGHT EYE AND 27 INJECTION IN LEFT EYE
     Route: 031
  2. AFLIBERCEPT IAI [Suspect]
     Active Substance: AFLIBERCEPT
     Dosage: SIX ADDITIONAL BILATERAL INJECTIONS
     Route: 031

REACTIONS (3)
  - Off label use [Unknown]
  - Endophthalmitis [Recovering/Resolving]
  - Retinal haemorrhage [Recovering/Resolving]
